FAERS Safety Report 7436928-8 (Version None)
Quarter: 2011Q2

REPORT INFORMATION
  Report Type: 
  Country: None (occurrence: None)
  Receive Date: 20110426
  Receipt Date: 20110414
  Transmission Date: 20111010
  Serious: Yes (Other)
  Sender: FDA-Public Use
  Company Number: US-SHIONOGI USA, INC-2011000052

PATIENT

DRUGS (1)
  1. ADRENACLICK [Suspect]
     Dosage: 0.15 MG, PRN
     Route: 030

REACTIONS (2)
  - DEVICE FAILURE [None]
  - PRODUCT QUALITY ISSUE [None]
